FAERS Safety Report 12812671 (Version 1)
Quarter: 2016Q4

REPORT INFORMATION
  Report Type: Spontaneous
  Country: US (occurrence: US)
  Receive Date: 20161005
  Receipt Date: 20161005
  Transmission Date: 20170207
  Serious: No
  Sender: FDA-Public Use
  Company Number: US-ENDO PHARMACEUTICALS INC.-2016-000075

PATIENT
  Sex: Female
  Weight: 68.1 kg

DRUGS (2)
  1. CARISOPRODOL TABLETS 350MG [Suspect]
     Active Substance: CARISOPRODOL
     Indication: TEMPOROMANDIBULAR JOINT SYNDROME
  2. CARISOPRODOL TABLETS 350MG [Suspect]
     Active Substance: CARISOPRODOL
     Indication: MYALGIA
     Route: 048

REACTIONS (2)
  - Drug ineffective [Not Recovered/Not Resolved]
  - Visual acuity reduced [Not Recovered/Not Resolved]

NARRATIVE: CASE EVENT DATE: 2015
